FAERS Safety Report 18181172 (Version 1)
Quarter: 2020Q3

REPORT INFORMATION
  Report Type: Spontaneous
  Country: US (occurrence: US)
  Receive Date: 20200821
  Receipt Date: 20200821
  Transmission Date: 20201103
  Serious: Yes (Death, Hospitalization)
  Sender: FDA-Public Use
  Company Number: US-PARATEK PHARMACEUTICALS, INC.-2020PTK00091

PATIENT
  Age: 86 Year
  Sex: Male

DRUGS (1)
  1. NUZYRA [Suspect]
     Active Substance: OMADACYCLINE
     Indication: BACTERAEMIA
     Dosage: 300 MG, 1X/DAY
     Route: 048
     Dates: start: 2020, end: 202008

REACTIONS (3)
  - Death [Fatal]
  - Hospitalisation [Recovered/Resolved]
  - Off label use [Not Recovered/Not Resolved]

NARRATIVE: CASE EVENT DATE: 2020
